FAERS Safety Report 5878855-3 (Version None)
Quarter: 2008Q3

REPORT INFORMATION
  Report Type: 
  Country: None (occurrence: None)
  Receive Date: 20080910
  Receipt Date: 20080910
  Transmission Date: 20090109
  Serious: Yes (Hospitalization)
  Sender: FDA-Public Use
  Company Number: None

PATIENT
  Age: 54 Year
  Weight: 65.7716 kg

DRUGS (20)
  1. PANITUMUMAB [Suspect]
     Indication: PNEUMONIA ASPIRATION
     Dosage: 9MG/KG
     Dates: start: 20080415, end: 20080722
  2. DOCETAXEL [Suspect]
     Indication: PNEUMONIA ASPIRATION
     Dosage: 75MG/M2
     Dates: start: 20080415, end: 20080722
  3. CISPLATIN [Suspect]
     Indication: PNEUMONIA ASPIRATION
     Dosage: 100MG/M2
     Dates: start: 20080415, end: 20080722
  4. FLUOROURACIL [Suspect]
     Indication: PNEUMONIA ASPIRATION
     Dosage: 800MG/M2
     Dates: start: 20080415, end: 20080722
  5. CARBOPLATIN [Suspect]
     Dosage: AUC 1.5
     Dates: start: 20080715, end: 20080722
  6. ACYCLOVIR [Concomitant]
  7. ATIVAN [Concomitant]
  8. COLACE [Concomitant]
  9. COMPAZINE [Concomitant]
  10. DECADRON SRC [Concomitant]
  11. KAOPECTATE [Concomitant]
  12. LEVAQUIN [Concomitant]
  13. OMPRAZOLE [Concomitant]
  14. OXYCODINE [Concomitant]
  15. REGLAN [Concomitant]
  16. SENNA [Concomitant]
  17. SIMETHCONE [Concomitant]
  18. TYLENOL (CAPLET) [Concomitant]
  19. ZANTAC [Concomitant]
  20. ZOFRAN [Concomitant]

REACTIONS (7)
  - CHILLS [None]
  - DYSPHAGIA [None]
  - INFECTION [None]
  - PLEURITIC PAIN [None]
  - PNEUMONIA ASPIRATION [None]
  - PYREXIA [None]
  - SERUM SICKNESS [None]
